FAERS Safety Report 9661131 (Version 1)
Quarter: 2013Q4

REPORT INFORMATION
  Report Type: Spontaneous
  Country: GB (occurrence: None)
  Receive Date: 20131030
  Receipt Date: 20131030
  Transmission Date: 20140711
  Serious: Yes (Other)
  Sender: FDA-Public Use
  Company Number: AUR-APL-2013-08752

PATIENT
  Age: 61 Year
  Sex: Female
  Weight: 54.88 kg

DRUGS (1)
  1. NAPROXEN (NAPROXEN) [Suspect]
     Indication: ARTHRITIS
     Route: 048
     Dates: start: 20130920, end: 20131002

REACTIONS (4)
  - Vascular rupture [None]
  - Ocular hyperaemia [None]
  - Conjunctival oedema [None]
  - Alopecia [None]
